FAERS Safety Report 26143287 (Version 1)
Quarter: 2025Q4

REPORT INFORMATION
  Report Type: Report from Study
  Country: US (occurrence: US)
  Receive Date: 20251211
  Receipt Date: 20251211
  Transmission Date: 20260118
  Serious: Yes (Other)
  Sender: NOVARTIS
  Company Number: US-002147023-NVSC2025US189190

PATIENT
  Age: 89 Year
  Sex: Female
  Weight: 54 kg

DRUGS (1)
  1. LAMPRENE [Suspect]
     Active Substance: CLOFAZIMINE
     Indication: Mycobacterial infection
     Dosage: 100 MG, QD
     Route: 048
     Dates: start: 20250825, end: 20251003

REACTIONS (2)
  - Deafness [Recovered/Resolved]
  - Concomitant disease aggravated [Recovered/Resolved]

NARRATIVE: CASE EVENT DATE: 20251003
